FAERS Safety Report 15297763 (Version 1)
Quarter: 2018Q3

REPORT INFORMATION
  Report Type: Spontaneous
  Country: FR (occurrence: FR)
  Receive Date: 20180820
  Receipt Date: 20180820
  Transmission Date: 20181010
  Serious: Yes (Death, Other)
  Sender: FDA-Public Use
  Company Number: FR-BAUSCH-BL-2018-022439

PATIENT
  Age: 68 Year
  Sex: Female

DRUGS (7)
  1. FLUOROURACIL. [Suspect]
     Active Substance: FLUOROURACIL
     Indication: BREAST CANCER
     Route: 065
  2. DOXORUBICIN [Suspect]
     Active Substance: DOXORUBICIN
     Indication: BREAST CANCER
     Route: 065
  3. CYCLOPHOSPHAMIDE. [Suspect]
     Active Substance: CYCLOPHOSPHAMIDE
     Indication: BREAST CANCER
     Route: 065
  4. VINCRISTINE SULFATE. [Suspect]
     Active Substance: VINCRISTINE SULFATE
     Indication: BREAST CANCER
     Route: 065
  5. MITOMYCIN. [Suspect]
     Active Substance: MITOMYCIN
     Indication: BREAST CANCER
     Route: 065
  6. ETOPOSIDE. [Suspect]
     Active Substance: ETOPOSIDE
     Indication: BREAST CANCER
     Route: 065
  7. VINDESINE [Suspect]
     Active Substance: VINDESINE
     Indication: BREAST CANCER
     Route: 065

REACTIONS (1)
  - Acute promyelocytic leukaemia [Fatal]
